FAERS Safety Report 6268845-3 (Version None)
Quarter: 2009Q3

REPORT INFORMATION
  Report Type: 
  Country: None (occurrence: None)
  Receive Date: 20090715
  Receipt Date: 20090709
  Transmission Date: 20100115
  Serious: Yes (Other)
  Sender: FDA-Public Use
  Company Number: CA-ELI_LILLY_AND_COMPANY-CA200907002070

PATIENT
  Age: 57 Year
  Sex: Male

DRUGS (4)
  1. HUMALOG [Suspect]
     Dosage: 14 U, EACH MORNING
     Dates: start: 20080501
  2. HUMALOG [Suspect]
     Dosage: 10 U, OTHER
     Dates: start: 20080501
  3. HUMALOG [Suspect]
     Dosage: 14 U, EACH EVENING
     Dates: start: 20080501
  4. HUMULIN N [Suspect]
     Dosage: 48 U, EACH EVENING
     Dates: start: 20080501

REACTIONS (7)
  - ADVERSE REACTION [None]
  - FEELING ABNORMAL [None]
  - INJECTION SITE PRURITUS [None]
  - LOSS OF CONSCIOUSNESS [None]
  - RASH MACULAR [None]
  - SWOLLEN TONGUE [None]
  - URTICARIA [None]
